FAERS Safety Report 7014877-7 (Version None)
Quarter: 2010Q3

REPORT INFORMATION
  Report Type: 
  Country: None (occurrence: None)
  Receive Date: 20100927
  Receipt Date: 20100707
  Transmission Date: 20110219
  Serious: No
  Sender: FDA-Public Use
  Company Number: US-ASTRAZENECA-2010SE18074

PATIENT
  Age: 60 Year
  Sex: Female
  Weight: 70.8 kg

DRUGS (2)
  1. ARIMIDEX [Suspect]
     Indication: ENDOMETRIOSIS
     Route: 048
     Dates: start: 20051001
  2. ARIMIDEX [Suspect]
     Indication: ENDOMETRIAL SARCOMA
     Route: 048
     Dates: start: 20051001

REACTIONS (10)
  - BLOOD CHOLESTEROL INCREASED [None]
  - BLOOD PRESSURE INCREASED [None]
  - FALL [None]
  - FEELING HOT [None]
  - INSOMNIA [None]
  - JOINT SWELLING [None]
  - NEOPLASM [None]
  - NERVOUSNESS [None]
  - SPINAL DISORDER [None]
  - TENSION [None]
